FAERS Safety Report 20544375 (Version 1)
Quarter: 2022Q1

REPORT INFORMATION
  Report Type: Spontaneous
  Country: BR (occurrence: BR)
  Receive Date: 20220303
  Receipt Date: 20220303
  Transmission Date: 20220423
  Serious: Yes (Hospitalization, Other)
  Sender: FDA-Public Use
  Company Number: BR-SA-SAC20220225001489

PATIENT
  Age: 55 Year
  Sex: Male
  Weight: 94.5 kg

DRUGS (2)
  1. ENOXAPARIN SODIUM [Suspect]
     Active Substance: ENOXAPARIN SODIUM
     Indication: Postoperative care
     Dosage: 1 DF
     Route: 065
     Dates: start: 20220211, end: 20220211
  2. NOODIPINA [Concomitant]
     Dosage: UNK, QD

REACTIONS (3)
  - Near death experience [Unknown]
  - Malaise [Unknown]
  - Haemorrhage [Unknown]

NARRATIVE: CASE EVENT DATE: 20220211
